FAERS Safety Report 15936422 (Version 1)
Quarter: 2019Q1

REPORT INFORMATION
  Report Type: Spontaneous
  Country: US (occurrence: US)
  Receive Date: 20190208
  Receipt Date: 20190208
  Transmission Date: 20190417
  Serious: Yes (Hospitalization, Other)
  Sender: FDA-Public Use
  Company Number: US-GLAXOSMITHKLINE-US2019GSK020799

PATIENT
  Age: 55 Year
  Sex: Male

DRUGS (1)
  1. BUPROPION. [Suspect]
     Active Substance: BUPROPION
     Indication: MOOD ALTERED

REACTIONS (9)
  - Affect lability [Unknown]
  - Bipolar I disorder [Recovered/Resolved]
  - Gun shot wound [Recovered/Resolved]
  - Energy increased [Unknown]
  - Psychomotor hyperactivity [Unknown]
  - Mania [Unknown]
  - Impulsive behaviour [Unknown]
  - Suicidal ideation [Unknown]
  - Depression [Unknown]
